FAERS Safety Report 9781301 (Version 1)
Quarter: 2013Q4

REPORT INFORMATION
  Report Type: Spontaneous
  Country: NO (occurrence: NO)
  Receive Date: 20131224
  Receipt Date: 20131224
  Transmission Date: 20140711
  Serious: Yes (Hospitalization, Other)
  Sender: FDA-Public Use
  Company Number: NO-WATSON-2013-23163

PATIENT
  Age: 90 Year
  Sex: Male

DRUGS (9)
  1. METOPROLOL SUCCINATE (UNKNOWN) [Suspect]
     Indication: BLOOD PRESSURE INCREASED
     Dosage: 100 MG, UNK
     Route: 048
     Dates: start: 201302
  2. METOPROLOL SUCCINATE (UNKNOWN) [Suspect]
     Indication: ANGINA PECTORIS
  3. ATACAND [Concomitant]
     Indication: BLOOD PRESSURE INCREASED
     Dosage: 4 MG, DAILY
     Route: 048
     Dates: start: 20131016
  4. NITROGLYCERINE [Concomitant]
     Indication: ANGINA PECTORIS
     Dosage: STARTED MANY YEARS AGO, AS NECESSARY
     Route: 065
  5. SPIRIX [Concomitant]
     Indication: OEDEMA DUE TO CARDIAC DISEASE
     Dosage: 25 MG, DAILY, STARTED 5 WEEKS AGO
     Route: 048
  6. SOMAC [Concomitant]
     Indication: GASTROOESOPHAGEAL REFLUX DISEASE
     Dosage: UNK, FOR A FEW WEEKS IN SUMMER 2013
     Route: 065
     Dates: start: 2013
  7. NEURONTIN [Concomitant]
     Indication: PAIN IN EXTREMITY
     Dosage: 600 MG, DAILY, STARTED 3-5 WEEKS AGO
     Route: 065
  8. ALBYL [Concomitant]
     Indication: MYOCARDIAL INFARCTION
     Dosage: 75 MG, DAILY, STARTED MANY YEARS AGO
     Route: 048
  9. BURINEX [Concomitant]
     Indication: OEDEMA DUE TO CARDIAC DISEASE
     Dosage: 50 MG, DAILY, STARTED 3 WEEKS AGO
     Route: 048

REACTIONS (4)
  - Myocardial infarction [Unknown]
  - Balance disorder [Unknown]
  - Dizziness [Unknown]
  - Blood pressure fluctuation [Unknown]
